FAERS Safety Report 7277441-0 (Version None)
Quarter: 2011Q1

REPORT INFORMATION
  Report Type: 
  Country: None (occurrence: None)
  Receive Date: 20110207
  Receipt Date: 20101217
  Transmission Date: 20110831
  Serious: Yes (Other)
  Sender: FDA-Public Use
  Company Number: US-BAYER-201018393NA

PATIENT
  Sex: Female

DRUGS (8)
  1. RITUXIMAB [Concomitant]
  2. YASMIN [Suspect]
     Dosage: UNK
     Dates: start: 20060216
  3. MOTRIN [Concomitant]
     Indication: CHEST PAIN
  4. ZEGERID [Concomitant]
  5. BACTRIM [Concomitant]
     Indication: URINARY TRACT INFECTION
     Dosage: UNK
     Dates: start: 20070223
  6. ZELNORM [Concomitant]
     Indication: ABDOMINAL PAIN
     Dosage: UNK
     Dates: start: 20070213
  7. YASMIN [Suspect]
     Indication: PRODUCT USED FOR UNKNOWN INDICATION
     Route: 048
     Dates: start: 20060101, end: 20061101
  8. QUESTRAN [Concomitant]

REACTIONS (1)
  - CHOLELITHIASIS [None]
